FAERS Safety Report 18489796 (Version 1)
Quarter: 2020Q4

REPORT INFORMATION
  Report Type: Spontaneous
  Country: US (occurrence: US)
  Receive Date: 20201110
  Receipt Date: 20201110
  Transmission Date: 20210114
  Serious: Yes (Other)
  Sender: FDA-Public Use
  Company Number: None

PATIENT
  Age: 60 Year
  Sex: Female
  Weight: 78.47 kg

DRUGS (11)
  1. LORATADINE. [Suspect]
     Active Substance: LORATADINE
  2. ATORVASTATIN [Suspect]
     Active Substance: ATORVASTATIN
  3. MONTELUKAST [Suspect]
     Active Substance: MONTELUKAST SODIUM
  4. HYDROCHLOROTHIAZIDE. [Suspect]
     Active Substance: HYDROCHLOROTHIAZIDE
  5. MELOXICAM. [Suspect]
     Active Substance: MELOXICAM
  6. AMLODIPINE [Suspect]
     Active Substance: AMLODIPINE BESYLATE
  7. VITAMIN D [Concomitant]
     Active Substance: VITAMIN D NOS
  8. CILOSTAZOL. [Suspect]
     Active Substance: CILOSTAZOL
  9. MULTI VITAMINS [Concomitant]
     Active Substance: VITAMINS
  10. CIPROFLOXACIN. [Suspect]
     Active Substance: CIPROFLOXACIN
  11. HYDROCHLOROTHIAZIDE. [Suspect]
     Active Substance: HYDROCHLOROTHIAZIDE

REACTIONS (5)
  - Poor quality sleep [None]
  - Fatigue [None]
  - Peripheral swelling [None]
  - Asthenia [None]
  - Joint swelling [None]
